FAERS Safety Report 5918703-6 (Version None)
Quarter: 2008Q4

REPORT INFORMATION
  Report Type: 
  Country: None (occurrence: None)
  Receive Date: 20081015
  Receipt Date: 20080612
  Transmission Date: 20090506
  Serious: No
  Sender: FDA-Public Use
  Company Number: US-ASTRAZENECA-2008UW11839

PATIENT
  Age: 75 Year
  Sex: Male
  Weight: 68 kg

DRUGS (11)
  1. SYMBICORT [Suspect]
     Indication: ASTHMA
     Dosage: 160/4.5MG
     Route: 055
  2. ASACOL [Concomitant]
  3. LIPITOR [Concomitant]
  4. MECAPTOPURINE [Concomitant]
  5. TIZAC [Concomitant]
  6. LISINOPRIL [Concomitant]
     Route: 048
  7. ZETIA [Concomitant]
  8. OMEPRAZOLE [Concomitant]
     Route: 048
  9. COUMADIN [Concomitant]
  10. HYDROCHLOROTHIAZIDE [Concomitant]
  11. ASPIRIN [Concomitant]

REACTIONS (2)
  - SPEECH DISORDER [None]
  - SWOLLEN TONGUE [None]
